FAERS Safety Report 13278831 (Version 2)
Quarter: 2017Q1

REPORT INFORMATION
  Report Type: Spontaneous
  Country: US (occurrence: US)
  Receive Date: 20170228
  Receipt Date: 20170302
  Transmission Date: 20170428
  Serious: No
  Sender: FDA-Public Use
  Company Number: US-ELI_LILLY_AND_COMPANY-US201702010448

PATIENT
  Age: 49 Year
  Sex: Male

DRUGS (3)
  1. METFORMIN [Concomitant]
     Active Substance: METFORMIN HYDROCHLORIDE
     Dosage: 1000 MG, QD
     Route: 065
  2. TRULICITY [Suspect]
     Active Substance: DULAGLUTIDE
     Indication: DIABETIC KETOACIDOSIS
     Dosage: 1.50 MG, WEEKLY (1/W)
     Route: 065
     Dates: start: 20160923
  3. TRULICITY [Suspect]
     Active Substance: DULAGLUTIDE
     Dosage: 1.50 MG, WEEKLY (1/W)
     Route: 065

REACTIONS (3)
  - Injection site haemorrhage [Unknown]
  - Injection site pain [Unknown]
  - Drug dose omission [Unknown]

NARRATIVE: CASE EVENT DATE: 20170223
